FAERS Safety Report 5693119-9 (Version None)
Quarter: 2008Q2

REPORT INFORMATION
  Report Type: 
  Country: None (occurrence: None)
  Receive Date: 20080402
  Receipt Date: 20080402
  Transmission Date: 20081010
  Serious: Yes (Disabling, Other)
  Sender: FDA-Public Use
  Company Number: None

PATIENT
  Age: 32 Year
  Sex: Female
  Weight: 81.6475 kg

DRUGS (1)
  1. YASMIN [Suspect]
     Indication: MENSTRUATION IRREGULAR
     Dosage: DAILY PO
     Route: 048
     Dates: start: 20020701, end: 20070616

REACTIONS (18)
  - ALOPECIA [None]
  - ANXIETY [None]
  - ARTHROPATHY [None]
  - COGNITIVE DISORDER [None]
  - DEPRESSION [None]
  - EAR DISCOMFORT [None]
  - FATIGUE [None]
  - FOOD CRAVING [None]
  - IMPULSE-CONTROL DISORDER [None]
  - MOOD ALTERED [None]
  - MUSCULAR WEAKNESS [None]
  - PARAESTHESIA [None]
  - PARANOIA [None]
  - PERSONALITY CHANGE [None]
  - SELF ESTEEM DECREASED [None]
  - SKIN DISCOLOURATION [None]
  - THINKING ABNORMAL [None]
  - VARICOSE VEIN [None]
